FAERS Safety Report 14795050 (Version 1)
Quarter: 2018Q2

REPORT INFORMATION
  Report Type: Spontaneous
  Country: AR (occurrence: AR)
  Receive Date: 20180423
  Receipt Date: 20180423
  Transmission Date: 20180711
  Serious: Yes (Disabling)
  Sender: FDA-Public Use
  Company Number: AR-REGENERON PHARMACEUTICALS, INC.-2018-21602

PATIENT

DRUGS (4)
  1. EYLEA [Suspect]
     Active Substance: AFLIBERCEPT
     Dosage: FOURTH EYLEA INJECTION
  2. EYLEA [Suspect]
     Active Substance: AFLIBERCEPT
     Indication: MACULOPATHY
     Dosage: FIRST EYLEA INJECTION
     Dates: start: 201701, end: 201701
  3. EYLEA [Suspect]
     Active Substance: AFLIBERCEPT
     Dosage: SECOND EYLEA INJECTION
     Dates: start: 201705, end: 201705
  4. EYLEA [Suspect]
     Active Substance: AFLIBERCEPT
     Dosage: THIRD EYLEA INJECTION
     Dates: start: 201707, end: 201707

REACTIONS (4)
  - Drug ineffective [Unknown]
  - Inappropriate schedule of drug administration [Unknown]
  - Maculopathy [Unknown]
  - Visual field defect [Unknown]
